FAERS Safety Report 12164201 (Version 2)
Quarter: 2016Q1

REPORT INFORMATION
  Report Type: Report from Study
  Country: GB (occurrence: GB)
  Receive Date: 20160309
  Receipt Date: 20160328
  Transmission Date: 20160526
  Serious: Yes (Other)
  Sender: FDA-Public Use
  Company Number: GB-JNJFOC-20160306971

PATIENT
  Sex: Female

DRUGS (1)
  1. XARELTO [Suspect]
     Active Substance: RIVAROXABAN
     Indication: PRODUCT USED FOR UNKNOWN INDICATION
     Route: 048

REACTIONS (8)
  - Speech disorder [Unknown]
  - Heart injury [Unknown]
  - Palpitations [Unknown]
  - Menorrhagia [Unknown]
  - Dyspnoea exertional [Unknown]
  - Thrombosis [Unknown]
  - Abasia [Unknown]
  - Epistaxis [Unknown]
